FAERS Safety Report 17043328 (Version 1)
Quarter: 2019Q4

REPORT INFORMATION
  Report Type: Spontaneous
  Country: US (occurrence: US)
  Receive Date: 20191017
  Receipt Date: 20191017
  Transmission Date: 20200122
  Serious: No
  Sender: FDA-Public Use
  Company Number: None

PATIENT
  Age: 73 Year
  Sex: Male
  Weight: 91.17 kg

DRUGS (1)
  1. LISINOPRIL. [Suspect]
     Active Substance: LISINOPRIL
     Indication: HYPERTENSION
     Route: 048
     Dates: start: 20190315, end: 20190328

REACTIONS (4)
  - Ventricular extrasystoles [None]
  - Therapy change [None]
  - Sinus bradycardia [None]
  - Hyperkalaemia [None]

NARRATIVE: CASE EVENT DATE: 20190328
